FAERS Safety Report 15029564 (Version 1)
Quarter: 2018Q2

REPORT INFORMATION
  Report Type: Spontaneous
  Country: BR (occurrence: BR)
  Receive Date: 20180619
  Receipt Date: 20180619
  Transmission Date: 20180711
  Serious: Yes (Disabling)
  Sender: FDA-Public Use
  Company Number: BR-SA-2018SA145855

PATIENT
  Sex: Male

DRUGS (4)
  1. PRADAX [Concomitant]
     Active Substance: DABIGATRAN ETEXILATE MESYLATE
     Dosage: UNK
     Route: 048
  2. MELLERIL [THIORIDAZINE HYDROCHLORIDE] [Concomitant]
     Dosage: UNK
     Route: 048
  3. STILNOX [Suspect]
     Active Substance: ZOLPIDEM TARTRATE
     Dosage: UNKNOWN
  4. RISPERIDONE. [Concomitant]
     Active Substance: RISPERIDONE
     Route: 048

REACTIONS (1)
  - Bedridden [Unknown]
